FAERS Safety Report 9537923 (Version 1)
Quarter: 2013Q3

REPORT INFORMATION
  Report Type: Spontaneous
  Country: TW (occurrence: TW)
  Receive Date: 20130919
  Receipt Date: 20130919
  Transmission Date: 20140515
  Serious: Yes (Other)
  Sender: FDA-Public Use
  Company Number: PHHY2013TW102487

PATIENT
  Sex: Female

DRUGS (1)
  1. CURAM LB [Suspect]
     Indication: RHINITIS
     Dosage: 1000 MG, UNK
     Route: 048
     Dates: start: 20130902

REACTIONS (2)
  - Renal disorder [Not Recovered/Not Resolved]
  - Rhinitis [Not Recovered/Not Resolved]
